FAERS Safety Report 11715660 (Version 2)
Quarter: 2015Q4

REPORT INFORMATION
  Report Type: Spontaneous
  Country: US (occurrence: US)
  Receive Date: 20151104
  Receipt Date: 20151110
  Transmission Date: 20160304
  Serious: No
  Sender: FDA-Public Use
  Company Number: US-ELI_LILLY_AND_COMPANY-US201108006476

PATIENT
  Age: 71 Year
  Sex: Female

DRUGS (5)
  1. FORTEO [Suspect]
     Active Substance: TERIPARATIDE
     Indication: OSTEOPOROSIS
     Dosage: 20 UG, QD
     Route: 065
     Dates: start: 20110729
  2. FORTEO [Suspect]
     Active Substance: TERIPARATIDE
     Dosage: 20 UG, QD
     Route: 065
  3. FORTEO [Suspect]
     Active Substance: TERIPARATIDE
     Dosage: 20 UG, QD
     Route: 065
  4. FORTEO [Suspect]
     Active Substance: TERIPARATIDE
     Dosage: 20 UG, QD
     Route: 065
  5. FORTEO [Suspect]
     Active Substance: TERIPARATIDE
     Dosage: 20 UG, QD
     Dates: end: 20120111

REACTIONS (27)
  - Pain in extremity [Unknown]
  - Neck pain [Unknown]
  - Cough [Recovered/Resolved]
  - Blood calcium increased [Unknown]
  - Depression [Unknown]
  - Back pain [Not Recovered/Not Resolved]
  - Feeling abnormal [Recovered/Resolved]
  - Pollakiuria [Unknown]
  - Arthralgia [Not Recovered/Not Resolved]
  - Cystitis [Unknown]
  - Pain in extremity [Not Recovered/Not Resolved]
  - Visual impairment [Unknown]
  - Musculoskeletal disorder [Unknown]
  - Arthralgia [Unknown]
  - Bone pain [Unknown]
  - Injection site pain [Unknown]
  - Injection site bruising [Unknown]
  - Headache [Unknown]
  - Muscle spasms [Not Recovered/Not Resolved]
  - Intentional product misuse [Unknown]
  - Myalgia [Not Recovered/Not Resolved]
  - Malaise [Not Recovered/Not Resolved]
  - Nervousness [Unknown]
  - Constipation [Unknown]
  - Pain [Unknown]
  - Drug dose omission [Unknown]
  - Lung infection [Recovered/Resolved]

NARRATIVE: CASE EVENT DATE: 20110811
